FAERS Safety Report 5772973-6 (Version None)
Quarter: 2008Q2

REPORT INFORMATION
  Report Type: 
  Country: None (occurrence: None)
  Receive Date: 20080611
  Receipt Date: 20080527
  Transmission Date: 20081010
  Serious: Yes (Death)
  Sender: FDA-Public Use
  Company Number: 2008AL005878

PATIENT
  Age: 51 Year
  Sex: Male

DRUGS (7)
  1. DIGOXIN [Suspect]
     Indication: CARDIAC FAILURE CONGESTIVE
     Dosage: 0.125 MG, QD, PO
     Route: 048
     Dates: start: 20080101, end: 20080407
  2. ASPIRIN [Concomitant]
  3. PEPCID [Concomitant]
  4. LISINOPRIL [Concomitant]
  5. METOPROLOL TARTRATE [Concomitant]
  6. ZOCOR [Concomitant]
  7. ALDACTONE [Concomitant]

REACTIONS (6)
  - DIZZINESS [None]
  - FALL [None]
  - FATIGUE [None]
  - FEELING ABNORMAL [None]
  - HEART RATE IRREGULAR [None]
  - PERIPHERAL VASCULAR DISORDER [None]
